FAERS Safety Report 19420792 (Version 2)
Quarter: 2021Q3

REPORT INFORMATION
  Report Type: Spontaneous
  Country: US (occurrence: US)
  Receive Date: 20210616
  Receipt Date: 20210701
  Transmission Date: 20211014
  Serious: No
  Sender: FDA-Public Use
  Company Number: US-DSJP-DSU-2021-118065

PATIENT
  Age: 37 Year
  Sex: Female

DRUGS (1)
  1. TURALIO [Suspect]
     Active Substance: PEXIDARTINIB HYDROCHLORIDE
     Indication: GIANT CELL TUMOUR OF TENDON SHEATH
     Dosage: 800 MG, QD
     Route: 048
     Dates: start: 202001

REACTIONS (6)
  - Fatigue [Unknown]
  - Pigmentation disorder [Unknown]
  - Periorbital oedema [Unknown]
  - Pruritus [Recovered/Resolved]
  - Loss of therapeutic response [Unknown]
  - Hair colour changes [Unknown]

NARRATIVE: CASE EVENT DATE: 2020
